FAERS Safety Report 12468749 (Version 1)
Quarter: 2016Q2

REPORT INFORMATION
  Report Type: Spontaneous
  Country: US (occurrence: US)
  Receive Date: 20160615
  Receipt Date: 20160615
  Transmission Date: 20160815
  Serious: No
  Sender: FDA-Public Use
  Company Number: US-GILEAD-2016-0219059

PATIENT
  Sex: Male

DRUGS (2)
  1. RANEXA [Suspect]
     Active Substance: RANOLAZINE
     Dosage: 1000 MG, X 2 DAILY
     Route: 065
  2. RANEXA [Suspect]
     Active Substance: RANOLAZINE
     Indication: PRODUCT USED FOR UNKNOWN INDICATION
     Dosage: 500 MG, X 2 DAILY
     Route: 065

REACTIONS (9)
  - Malaise [Unknown]
  - Retching [Unknown]
  - Snoring [Unknown]
  - Dyspepsia [Unknown]
  - Hiccups [Unknown]
  - Eating disorder [Unknown]
  - Vomiting [Unknown]
  - Tremor [Unknown]
  - Somnolence [Unknown]
